FAERS Safety Report 9842442 (Version 2)
Quarter: 2014Q1

REPORT INFORMATION
  Report Type: Spontaneous
  Country: US (occurrence: US)
  Receive Date: 20140124
  Receipt Date: 20140124
  Transmission Date: 20141002
  Serious: No
  Sender: FDA-Public Use
  Company Number: US-GILEAD-2011-0038147

PATIENT
  Age: 77 Year
  Sex: Male

DRUGS (3)
  1. RANEXA [Suspect]
     Indication: ANGINA PECTORIS
     Route: 048
  2. IMDUR [Concomitant]
  3. TOPROL [Concomitant]

REACTIONS (3)
  - Hypersomnia [Unknown]
  - Disturbance in attention [Unknown]
  - Constipation [Unknown]
